FAERS Safety Report 17201045 (Version 4)
Quarter: 2022Q2

REPORT INFORMATION
  Report Type: Report from Study
  Country: IT (occurrence: None)
  Receive Date: 20191226
  Receipt Date: 20220603
  Transmission Date: 20220721
  Serious: Yes (Other)
  Sender: FDA-Public Use
  Company Number: IT-ROCHE-2503979

PATIENT
  Age: 47 Year
  Sex: Male
  Weight: 68 kg

DRUGS (6)
  1. ATEZOLIZUMAB [Suspect]
     Active Substance: ATEZOLIZUMAB
     Indication: Colorectal cancer metastatic
     Dosage: ON 20/NOV/2019, HE RECEIVED MOST RECENT DOSE OF ATEZOLIZUMAB (840 MG)
     Route: 041
     Dates: start: 20191031
  2. BEVACIZUMAB [Suspect]
     Active Substance: BEVACIZUMAB
     Indication: Colorectal cancer metastatic
     Dosage: ON 20/NOV/2019, HE RECEIVED MOST RECENT DOSE OF  BEVACIZUMAB (320 MG)
     Route: 042
     Dates: start: 20191031
  3. FLUOROURACIL [Suspect]
     Active Substance: FLUOROURACIL
     Indication: Colorectal cancer metastatic
     Dosage: ON 20/NOV/2019, HE RECEIVED MOST RECENT DOSE OF  5 FLUROURACIL (5400 MG)
     Route: 042
     Dates: start: 20191031
  4. OXALIPLATIN [Suspect]
     Active Substance: OXALIPLATIN
     Indication: Colorectal cancer metastatic
     Dosage: ON 20/NOV/2019, HE RECEIVED MOST RECENT DOSE OF AOXALIPLATIN (145 MG)
     Route: 042
     Dates: start: 20191031
  5. IRINOTECAN [Suspect]
     Active Substance: IRINOTECAN
     Indication: Colorectal cancer metastatic
     Dosage: 165 MG/SQM
     Route: 042
     Dates: start: 20191031
  6. OMEPRAZOLE [Concomitant]
     Active Substance: OMEPRAZOLE
     Indication: Prophylaxis
     Route: 048
     Dates: start: 20181128

REACTIONS (2)
  - Alanine aminotransferase increased [Recovered/Resolved]
  - Aspartate aminotransferase increased [Recovered/Resolved]

NARRATIVE: CASE EVENT DATE: 20191203
